FAERS Safety Report 26043524 (Version 4)
Quarter: 2025Q4

REPORT INFORMATION
  Report Type: Spontaneous
  Country: JP (occurrence: JP)
  Receive Date: 20251113
  Receipt Date: 20251229
  Transmission Date: 20260118
  Serious: Yes (Hospitalization)
  Sender: BRISTOL-MYERS SQUIBB COMPANY
  Company Number: JP-BRISTOL-MYERS SQUIBB COMPANY-2025-122320

PATIENT
  Age: 84 Year
  Sex: Female
  Weight: 38 kg

DRUGS (13)
  1. ORENCIA [Suspect]
     Active Substance: ABATACEPT
     Indication: Rheumatoid arthritis
     Dosage: FROM STANDARD DOSE (500MG) TO 250 MG
     Route: 041
  2. ORENCIA [Suspect]
     Active Substance: ABATACEPT
     Dosage: THERAPY START DATE: 18-SEP-2025
     Route: 041
     Dates: end: 20251016
  3. ORENCIA [Suspect]
     Active Substance: ABATACEPT
     Dosage: FROM 17-JUL-2025 TO 28-AUG-2025, IT WAS RESUMED ONCE AT THE SAME DOSE AS BEFORE
     Route: 041
     Dates: start: 2025, end: 20250918
  4. DAPAGLIFLOZIN [Suspect]
     Active Substance: DAPAGLIFLOZIN
     Indication: Product used for unknown indication
     Route: 048
  5. PREDNISOLONE ASAHI KASEI [Concomitant]
     Indication: Rheumatoid arthritis
  6. SULFAMETHOXAZOLE\TRIMETHOPRIM [Concomitant]
     Active Substance: SULFAMETHOXAZOLE\TRIMETHOPRIM
     Indication: Prophylaxis
  7. AZULFIDINE EN-TABS [Concomitant]
     Active Substance: SULFASALAZINE
     Indication: Rheumatoid arthritis
  8. LIPITOR [Concomitant]
     Active Substance: ATORVASTATIN CALCIUM
     Indication: Product used for unknown indication
  9. LOSARTAN POTASSIUM SAWAI [Concomitant]
     Indication: Product used for unknown indication
  10. VONOPRAZAN FUMARATE [Concomitant]
     Active Substance: VONOPRAZAN FUMARATE
     Indication: Prophylaxis
  11. ALFACALCIDOL [Concomitant]
     Active Substance: ALFACALCIDOL
     Indication: Prophylaxis
  12. ENORAS [NUTRIENTS NOS] [Concomitant]
     Indication: Product used for unknown indication
  13. CALCIUM SENNOSIDES [Concomitant]
     Active Substance: SENNOSIDES
     Indication: Product used for unknown indication

REACTIONS (6)
  - C-reactive protein increased [Recovered/Resolved]
  - Bronchitis chronic [Recovered/Resolved]
  - Bronchitis [Recovered/Resolved]
  - Cough [Recovered/Resolved]
  - Condition aggravated [Recovered/Resolved]
  - Pyrexia [Recovered/Resolved]

NARRATIVE: CASE EVENT DATE: 20250301
